FAERS Safety Report 5633437-3 (Version None)
Quarter: 2008Q1

REPORT INFORMATION
  Report Type: 
  Country: None (occurrence: None)
  Receive Date: 20080221
  Receipt Date: 20080219
  Transmission Date: 20080703
  Serious: Yes (Hospitalization)
  Sender: FDA-Public Use
  Company Number: AU-TEVA-167766USA

PATIENT
  Sex: Male

DRUGS (3)
  1. PIMOZIDE TABLETS [Suspect]
  2. AMISULPRIDE [Suspect]
  3. QUETIAPINE FUMARATE [Suspect]

REACTIONS (5)
  - BLOOD CREATINE PHOSPHOKINASE INCREASED [None]
  - ELECTROCARDIOGRAM ABNORMAL [None]
  - NEUTROPHIL COUNT INCREASED [None]
  - TACHYCARDIA [None]
  - WHITE BLOOD CELL COUNT INCREASED [None]
